APPROVED DRUG PRODUCT: OXAZEPAM
Active Ingredient: OXAZEPAM
Strength: 15MG
Dosage Form/Route: CAPSULE;ORAL
Application: A072953 | Product #001
Applicant: WATSON LABORATORIES INC
Approved: Sep 28, 1990 | RLD: No | RS: No | Type: DISCN